FAERS Safety Report 8095232 (Version 2)
Quarter: 2014Q1

REPORT INFORMATION
  Report Type: Spontaneous
  Country: US (occurrence: US)
  Receive Date: 20110818
  Receipt Date: 20140324
  Transmission Date: 20141002
  Serious: Yes (Hospitalization)
  Sender: FDA-Public Use
  Company Number: US-RANBAXY-2011US-46657

PATIENT
  Age: 67 Year
  Sex: Female

DRUGS (1)
  1. GLIMEPIRIDE TABLET [Suspect]
     Indication: TYPE 2 DIABETES MELLITUS
     Dosage: HALF OF 2  MG TABLET DAILY
     Route: 065

REACTIONS (4)
  - Hypoglycaemia [Unknown]
  - Lobar pneumonia [Unknown]
  - Loss of consciousness [Unknown]
  - Hypoaesthesia oral [Unknown]
